FAERS Safety Report 5456626-X (Version None)
Quarter: 2007Q3

REPORT INFORMATION
  Report Type: 
  Country: None (occurrence: None)
  Receive Date: 20070918
  Receipt Date: 20070911
  Transmission Date: 20080115
  Serious: Yes (Death, Hospitalization)
  Sender: FDA-Public Use
  Company Number: US-GENENTECH-247549

PATIENT
  Age: 70 Year
  Sex: Female

DRUGS (4)
  1. AVASTIN [Suspect]
     Indication: NON-SMALL CELL LUNG CANCER
     Dosage: 975 MG, UNK
     Route: 042
     Dates: start: 20070829
  2. CETUXIMAB [Suspect]
     Indication: NON-SMALL CELL LUNG CANCER
     Dosage: 680 MG, UNK
     Route: 042
     Dates: start: 20070829
  3. CARBOPLATIN [Suspect]
     Indication: NON-SMALL CELL LUNG CANCER
     Dosage: 510 MG, UNK
     Route: 042
     Dates: start: 20070829
  4. TAXOL [Suspect]
     Indication: NON-SMALL CELL LUNG CANCER
     Dosage: 340 MG, UNK
     Route: 042
     Dates: start: 20070829

REACTIONS (1)
  - SEPSIS [None]
